FAERS Safety Report 9885540 (Version 3)
Quarter: 2014Q4

REPORT INFORMATION
  Report Type: Report from Study
  Country: FR (occurrence: FR)
  Receive Date: 20140210
  Receipt Date: 20141117
  Transmission Date: 20150529
  Serious: Yes (Death, Hospitalization, Other)
  Sender: FDA-Public Use
  Company Number: FR-PFIZER INC-2014032686

PATIENT
  Age: 57 Year
  Sex: Male
  Weight: 72 kg

DRUGS (27)
  1. MOTILIUM [Concomitant]
     Active Substance: DOMPERIDONE
     Dosage: UNK
     Dates: start: 20131218, end: 20131224
  2. OFLOCET [Concomitant]
     Active Substance: OFLOXACIN
     Indication: PANCYTOPENIA
  3. ATGAM [Suspect]
     Active Substance: EQUINE THYMOCYTE IMMUNE GLOBULIN
     Indication: APLASTIC ANAEMIA
     Dosage: 40 MG/KG, DAILY
     Dates: start: 20131213, end: 20131217
  4. TAZOCILLINE [Suspect]
     Active Substance: PIPERACILLIN SODIUM\TAZOBACTAM SODIUM
     Dosage: 4 G, 4X/DAY
     Route: 042
     Dates: start: 20131230, end: 20140103
  5. VANCOMYCIN [Suspect]
     Active Substance: VANCOMYCIN
     Dosage: 2.5 G, 1X/DAY
     Route: 042
     Dates: start: 20131224, end: 20140102
  6. CEFEPIME [Suspect]
     Active Substance: CEFEPIME\CEFEPIME HYDROCHLORIDE
     Dosage: 2 G, 3X/DAY
     Route: 042
     Dates: start: 20131224, end: 20131229
  7. NOXAFIL [Suspect]
     Active Substance: POSACONAZOLE
     Indication: PANCYTOPENIA
  8. CICLOSPORIN [Suspect]
     Active Substance: CYCLOSPORINE
     Indication: CHEMOTHERAPY
     Dosage: 220 MG, 1X/DAY
     Route: 042
     Dates: start: 20131214, end: 20140105
  9. CICLOSPORIN [Suspect]
     Active Substance: CYCLOSPORINE
     Indication: APLASTIC ANAEMIA
  10. SOLU-MEDROL [Concomitant]
     Active Substance: METHYLPREDNISOLONE SODIUM SUCCINATE
     Dosage: 10 MG, DAILY
     Dates: end: 20140102
  11. POLARAMINE [Concomitant]
     Active Substance: DEXCHLORPHENIRAMINE MALEATE
     Indication: PREMEDICATION
  12. CUBICIN [Suspect]
     Active Substance: DAPTOMYCIN
     Dosage: 420 MG, 1X/DAY
     Route: 042
     Dates: start: 20140103, end: 20140108
  13. SOLU-MEDROL [Concomitant]
     Active Substance: METHYLPREDNISOLONE SODIUM SUCCINATE
     Dosage: 70 MG, DAILY
     Dates: start: 20131214
  14. HEPARIN SODIUM. [Suspect]
     Active Substance: HEPARIN SODIUM
     Dosage: 7000 IU, 1X/DAY
     Route: 058
     Dates: start: 20131224, end: 20140108
  15. AMIKLIN [Suspect]
     Active Substance: AMIKACIN SULFATE
     Dosage: 1750 MG, 1X/DAY
     Route: 065
     Dates: start: 20131226, end: 20131230
  16. FLAGYL [Concomitant]
     Active Substance: METRONIDAZOLE\METRONIDAZOLE HYDROCHLORIDE
     Indication: DIVERTICULITIS
     Dosage: UNK
     Dates: start: 20140103
  17. FLAGYL [Concomitant]
     Active Substance: METRONIDAZOLE\METRONIDAZOLE HYDROCHLORIDE
     Indication: COLITIS
  18. OFLOCET [Concomitant]
     Active Substance: OFLOXACIN
     Indication: ENTEROBACTER TEST POSITIVE
     Dosage: UNK
     Dates: start: 201312, end: 20131220
  19. ZELITREX [Suspect]
     Active Substance: VALACYCLOVIR HYDROCHLORIDE
     Indication: ENTEROBACTER TEST POSITIVE
  20. NOXAFIL [Suspect]
     Active Substance: POSACONAZOLE
     Indication: ENTEROBACTER TEST POSITIVE
     Dosage: 300 MG, 3X/DAY
     Route: 048
     Dates: start: 20131205, end: 20140109
  21. INEXIUM [Suspect]
     Active Substance: ESOMEPRAZOLE
     Dosage: 20 MG, 1X/DAY
     Route: 048
     Dates: start: 20131205, end: 20140111
  22. OROKEN [Concomitant]
     Active Substance: CEFIXIME
     Indication: DIVERTICULITIS
  23. TIENAM [Concomitant]
     Active Substance: CILASTATIN SODIUM\IMIPENEM
     Indication: ENTEROBACTER TEST POSITIVE
     Dosage: UNK
     Dates: start: 20131206, end: 20131220
  24. ZELITREX [Suspect]
     Active Substance: VALACYCLOVIR HYDROCHLORIDE
     Indication: PANCYTOPENIA
     Dosage: 1000 MG, 3X/DAY
     Route: 048
     Dates: start: 20131203, end: 20140112
  25. OROKEN [Concomitant]
     Active Substance: CEFIXIME
     Indication: COLITIS
  26. PERFALGAN [Concomitant]
     Active Substance: ACETAMINOPHEN
     Indication: PREMEDICATION
  27. TIENAM [Concomitant]
     Active Substance: CILASTATIN SODIUM\IMIPENEM
     Indication: PANCYTOPENIA

REACTIONS (7)
  - Septic shock [Fatal]
  - Myalgia [Unknown]
  - Skin mass [Unknown]
  - Bacteraemia [Recovered/Resolved]
  - Generalised oedema [Unknown]
  - Bacteraemia [Recovered/Resolved]
  - Bacteraemia [Unknown]

NARRATIVE: CASE EVENT DATE: 20131224
